FAERS Safety Report 5474711-3 (Version None)
Quarter: 2007Q3

REPORT INFORMATION
  Report Type: 
  Country: None (occurrence: None)
  Receive Date: 20070928
  Receipt Date: 20070918
  Transmission Date: 20080115
  Serious: No
  Sender: FDA-Public Use
  Company Number: 2007-164465-NL

PATIENT
  Age: 61 Year
  Sex: Female

DRUGS (3)
  1. MIRTAZAPINE [Suspect]
     Indication: INSOMNIA
  2. ROSUVASTATIN [Concomitant]
  3. RAMIPRIL [Concomitant]

REACTIONS (8)
  - AGITATION [None]
  - DEPERSONALISATION [None]
  - HYPERACUSIS [None]
  - MYOCLONUS [None]
  - PALPITATIONS [None]
  - RESTLESS LEGS SYNDROME [None]
  - SWELLING FACE [None]
  - VISION BLURRED [None]
